FAERS Safety Report 9166855 (Version 1)
Quarter: 2013Q1

REPORT INFORMATION
  Report Type: Spontaneous
  Country: GB (occurrence: GB)
  Receive Date: 20130316
  Receipt Date: 20130316
  Transmission Date: 20140127
  Serious: Yes (Other)
  Sender: FDA-Public Use
  Company Number: GB-TEVA-390960ISR

PATIENT
  Age: 38 Year
  Sex: Female

DRUGS (6)
  1. AMOXICILLIN [Suspect]
     Indication: PRODUCT USED FOR UNKNOWN INDICATION
     Route: 065
  2. LAMICTAL [Interacting]
     Indication: BIPOLAR DISORDER
     Route: 065
     Dates: start: 2004
  3. LAMICTAL [Interacting]
     Indication: EPILEPSY
     Dosage: 200 MILLIGRAM DAILY; 25MG TITRATED UP TO 100MG TWICE A DAY
     Route: 048
     Dates: start: 2012
  4. IVABRADINE HYDROCHLORIDE [Concomitant]
  5. CLOBAZAM [Concomitant]
  6. CLOPIDOGREL [Concomitant]

REACTIONS (7)
  - Lupus-like syndrome [Not Recovered/Not Resolved]
  - Systemic lupus erythematosus [Not Recovered/Not Resolved]
  - Arthralgia [Not Recovered/Not Resolved]
  - Fatigue [Not Recovered/Not Resolved]
  - Myalgia [Not Recovered/Not Resolved]
  - Drug interaction [Unknown]
  - Contusion [Not Recovered/Not Resolved]
